FAERS Safety Report 20568840 (Version 1)
Quarter: 2022Q1

REPORT INFORMATION
  Report Type: Spontaneous
  Country: None (occurrence: US)
  Receive Date: 20220308
  Receipt Date: 20220308
  Transmission Date: 20220423
  Serious: Yes (Death)
  Sender: FDA-Public Use
  Company Number: US-Bio Products Laboratory Ltd-2126583

PATIENT
  Age: 48 Year
  Sex: Male

DRUGS (3)
  1. ALBUMIN (HUMAN) [Suspect]
     Active Substance: ALBUMIN HUMAN
     Indication: Hepatorenal syndrome
  2. OCTREOTIDE [Suspect]
     Active Substance: OCTREOTIDE
  3. MIDODRINE HYDROCHLORIDE [Suspect]
     Active Substance: MIDODRINE HYDROCHLORIDE

REACTIONS (1)
  - Drug ineffective [Fatal]
